FAERS Safety Report 7874426-8 (Version None)
Quarter: 2011Q4

REPORT INFORMATION
  Report Type: 
  Country: None (occurrence: None)
  Receive Date: 20111030
  Receipt Date: 20111021
  Transmission Date: 20120403
  Serious: Yes (Other)
  Sender: FDA-Public Use
  Company Number: US-AMGEN-USASP2011055132

PATIENT
  Age: 65 Year
  Sex: Female
  Weight: 80.726 kg

DRUGS (1)
  1. PROCRIT [Suspect]
     Indication: ANAEMIA OF MALIGNANT DISEASE
     Dosage: UNK UNK, Q2WK
     Route: 058
     Dates: end: 20110601

REACTIONS (6)
  - LEUKAEMIA RECURRENT [None]
  - ASTHENIA [None]
  - HAEMOGLOBIN DECREASED [None]
  - GASTRIC HAEMORRHAGE [None]
  - DYSPNOEA [None]
  - FATIGUE [None]
